FAERS Safety Report 21037126 (Version 2)
Quarter: 2022Q3

REPORT INFORMATION
  Report Type: Spontaneous
  Country: US (occurrence: US)
  Receive Date: 20220703
  Receipt Date: 20220714
  Transmission Date: 20221027
  Serious: Yes (Hospitalization, Other)
  Sender: FDA-Public Use
  Company Number: US-MLMSERVICE-20220620-3625100-1

PATIENT
  Age: 32 Year
  Sex: Female

DRUGS (29)
  1. HYDROCORTISONE [Suspect]
     Active Substance: HYDROCORTISONE
     Indication: Nervous system disorder
     Dosage: UNK UNK, QOW
     Dates: start: 202007
  2. HYDROCORTISONE [Suspect]
     Active Substance: HYDROCORTISONE
     Dosage: EVERY TWO WEEKS FOR FIVE CYCLES
     Dates: start: 202001, end: 2020
  3. PREDNISONE [Suspect]
     Active Substance: PREDNISONE
     Indication: B precursor type acute leukaemia
     Dosage: POMP REGIMEN
     Dates: start: 201908, end: 202001
  4. CYCLOPHOSPHAMIDE [Suspect]
     Active Substance: CYCLOPHOSPHAMIDE
     Indication: B precursor type acute leukaemia
     Dosage: HYPER-CVAD REGIMEN
     Dates: start: 2019, end: 202107
  5. CYCLOPHOSPHAMIDE [Suspect]
     Active Substance: CYCLOPHOSPHAMIDE
     Dosage: HYPER CAVD, CYCLE 3 INTERUPTED
     Dates: start: 202102, end: 202105
  6. CYCLOPHOSPHAMIDE [Suspect]
     Active Substance: CYCLOPHOSPHAMIDE
     Dosage: CVAD  CYCLE  4  PART  B  TREATMENT
     Dates: start: 202107, end: 2021
  7. DEXAMETHASONE [Suspect]
     Active Substance: DEXAMETHASONE
     Indication: B precursor type acute leukaemia
     Dosage: HYPER-CVAD REGIMEN
     Dates: start: 2019, end: 202107
  8. DEXAMETHASONE [Suspect]
     Active Substance: DEXAMETHASONE
     Dosage: HYPER CAVD, CYCLE 3 INTERUPTED
     Dates: start: 202102, end: 202105
  9. DEXAMETHASONE [Suspect]
     Active Substance: DEXAMETHASONE
     Dosage: CVAD  CYCLE  4  PART  B  TREATMENT
     Dates: start: 202107, end: 2021
  10. METHOTREXATE [Suspect]
     Active Substance: METHOTREXATE
     Indication: Nervous system disorder prophylaxis
     Dosage: UNK
     Route: 037
     Dates: start: 201904
  11. METHOTREXATE [Suspect]
     Active Substance: METHOTREXATE
     Indication: B precursor type acute leukaemia
     Dosage: POMP REGIMEN
     Dates: start: 201908, end: 202001
  12. METHOTREXATE [Suspect]
     Active Substance: METHOTREXATE
     Indication: Nervous system disorder
     Dosage: HIGH DOSE, EVERY TWO WEEKS FOR FIVE CYCLES
     Route: 037
     Dates: start: 202001, end: 2020
  13. METHOTREXATE [Suspect]
     Active Substance: METHOTREXATE
     Dosage: UNK, QOW
     Route: 037
     Dates: start: 202007
  14. ADRIAMYCIN [Suspect]
     Active Substance: DOXORUBICIN HYDROCHLORIDE
     Indication: B precursor type acute leukaemia
     Dosage: HYPER-CVAD REGIMEN
     Dates: start: 201904, end: 2019
  15. ADRIAMYCIN [Suspect]
     Active Substance: DOXORUBICIN HYDROCHLORIDE
     Dosage: CYCLE 3 PART A WAS INTERRUPTED
     Dates: start: 202102, end: 202105
  16. ADRIAMYCIN [Suspect]
     Active Substance: DOXORUBICIN HYDROCHLORIDE
     Dosage: CVAD  CYCLE  4  PART  B  TREATMENT
     Dates: start: 202107, end: 2021
  17. MITOXANTRONE [Suspect]
     Active Substance: MITOXANTRONE HYDROCHLORIDE
     Indication: B precursor type acute leukaemia
     Dosage: 1 CYCLE
     Dates: start: 202101, end: 2021
  18. VINCRISTINE SULFATE [Suspect]
     Active Substance: VINCRISTINE SULFATE
     Indication: B precursor type acute leukaemia
     Dosage: HYPER-CVAD REGIMEN
     Dates: start: 201904, end: 2019
  19. VINCRISTINE SULFATE [Suspect]
     Active Substance: VINCRISTINE SULFATE
     Dosage: POMP REGIMEN
     Dates: start: 201908, end: 202001
  20. VINCRISTINE SULFATE [Suspect]
     Active Substance: VINCRISTINE SULFATE
     Dosage: HYPER CAVD, CYCLE 3 INTERUPTED
     Dates: start: 202102, end: 202105
  21. VINCRISTINE SULFATE [Suspect]
     Active Substance: VINCRISTINE SULFATE
     Dosage: UNK
     Dates: start: 202107
  22. ETOPOSIDE [Suspect]
     Active Substance: ETOPOSIDE
     Indication: B precursor type acute leukaemia
     Dosage: UNK,1 CYCLE
     Dates: start: 202101, end: 2021
  23. CYTARABINE [Suspect]
     Active Substance: CYTARABINE
     Indication: Nervous system disorder
     Dosage: UNK
     Dates: start: 201904
  24. CYTARABINE [Suspect]
     Active Substance: CYTARABINE
     Indication: Nervous system disorder prophylaxis
     Dosage: EVERY TWO WEEKS FOR FIVE CYCLES
     Dates: start: 202001, end: 2020
  25. CYTARABINE [Suspect]
     Active Substance: CYTARABINE
     Dosage: UNK UNK, QOW
     Dates: start: 202007
  26. DASATINIB [Suspect]
     Active Substance: DASATINIB
     Indication: Acute lymphocytic leukaemia
     Dosage: UNK
     Dates: start: 2019
  27. IFOSFAMIDE [Suspect]
     Active Substance: IFOSFAMIDE
     Indication: B precursor type acute leukaemia
     Dosage: UNK
     Dates: start: 202101, end: 2021
  28. MERCAPTOPURINE [Suspect]
     Active Substance: MERCAPTOPURINE
     Indication: B precursor type acute leukaemia
     Dosage: UNK
     Dates: start: 201908, end: 202001
  29. PERCOCET [Concomitant]
     Active Substance: ACETAMINOPHEN\OXYCODONE HYDROCHLORIDE
     Dosage: UNK
     Dates: start: 2021

REACTIONS (14)
  - Appendicitis [Unknown]
  - Tuberculosis [Recovering/Resolving]
  - Strongyloidiasis [Recovering/Resolving]
  - Dyspnoea [Recovering/Resolving]
  - Chest pain [Recovering/Resolving]
  - Back pain [Recovering/Resolving]
  - Cough [Recovering/Resolving]
  - Abdominal pain upper [Recovering/Resolving]
  - Acute respiratory failure [Recovering/Resolving]
  - Pulmonary oedema [Recovering/Resolving]
  - Pericardial effusion [Recovering/Resolving]
  - Lymphadenopathy mediastinal [Recovering/Resolving]
  - Staphylococcal infection [Recovering/Resolving]
  - COVID-19 [Unknown]

NARRATIVE: CASE EVENT DATE: 20200101
